FAERS Safety Report 14144167 (Version 1)
Quarter: 2017Q4

REPORT INFORMATION
  Report Type: Spontaneous
  Country: FR (occurrence: FR)
  Receive Date: 20171031
  Receipt Date: 20171031
  Transmission Date: 20180321
  Serious: Yes (Hospitalization)
  Sender: FDA-Public Use
  Company Number: FR-AUROBINDO-AUR-APL-2017-42547

PATIENT
  Age: 44 Year
  Sex: Female

DRUGS (1)
  1. KETOPROFEN ARROW LP 100 MG SCORED TABLET EXTENDED RELEASE [Suspect]
     Active Substance: KETOPROFEN
     Indication: TENDONITIS
     Dosage: 200 MG, DAILY
     Route: 048
     Dates: start: 20170917, end: 20170926

REACTIONS (2)
  - Shock haemorrhagic [Recovered/Resolved]
  - Gastric ulcer [Not Recovered/Not Resolved]

NARRATIVE: CASE EVENT DATE: 20171001
